FAERS Safety Report 9541939 (Version 1)
Quarter: 2013Q3

REPORT INFORMATION
  Report Type: Spontaneous
  Country: MX (occurrence: None)
  Receive Date: 20130918
  Receipt Date: 20130918
  Transmission Date: 20140515
  Serious: Yes (Other)
  Sender: FDA-Public Use
  Company Number: ENTC2013-0336

PATIENT
  Age: 66 Year
  Sex: Female

DRUGS (4)
  1. STALEVO [Suspect]
     Indication: PARKINSON^S DISEASE
     Dosage: 1 DF DAILY; STRENGTH: 100/25/200 MG ORAL
     Dates: start: 201303, end: 201309
  2. PK MERZ [Concomitant]
  3. MELOXICAM [Concomitant]
  4. PARASETINA [Concomitant]

REACTIONS (3)
  - Restlessness [None]
  - Stress [None]
  - Dementia Alzheimer^s type [None]
